FAERS Safety Report 7740588-6 (Version None)
Quarter: 2011Q3

REPORT INFORMATION
  Report Type: 
  Country: None (occurrence: None)
  Receive Date: 20110909
  Receipt Date: 20110829
  Transmission Date: 20111222
  Serious: Yes (Hospitalization)
  Sender: FDA-Public Use
  Company Number: US-BAYER-2011-028621

PATIENT
  Age: 52 Year
  Sex: Female

DRUGS (5)
  1. AUGMENTIN '125' [Concomitant]
     Indication: ANTIBIOTIC THERAPY
     Dosage: 785 MG, BID
     Route: 048
  2. YASMIN [Suspect]
     Indication: MENSTRUATION IRREGULAR
     Dosage: UNK
     Dates: start: 20050101, end: 20070101
  3. AMI-TEX LA [Concomitant]
     Indication: NASAL CONGESTION
  4. AMI-TEX LA [Concomitant]
     Indication: COUGH
     Dosage: UNK UNK, BID
     Route: 048
  5. ATENOLOL [Concomitant]
     Indication: HYPERTENSION
     Dosage: 25 MG, HS
     Route: 048

REACTIONS (6)
  - EMOTIONAL DISTRESS [None]
  - PAIN [None]
  - INJURY [None]
  - ANXIETY [None]
  - DEEP VEIN THROMBOSIS [None]
  - PULMONARY EMBOLISM [None]
